FAERS Safety Report 17730798 (Version 2)
Quarter: 2020Q2

REPORT INFORMATION
  Report Type: Spontaneous
  Country: FR (occurrence: FR)
  Receive Date: 20200430
  Receipt Date: 20200506
  Transmission Date: 20200714
  Serious: Yes (Death)
  Sender: FDA-Public Use
  Company Number: FR-MYLANLABS-2020M1042554

PATIENT
  Age: 14 Year
  Sex: Male
  Weight: 89 kg

DRUGS (8)
  1. KIDROLASE [Suspect]
     Active Substance: ASPARAGINASE
     Indication: ACUTE MYELOID LEUKAEMIA
     Dosage: INCONNUE
     Route: 030
     Dates: start: 20160112, end: 20160121
  2. ETOPOPHOS [Suspect]
     Active Substance: ETOPOSIDE PHOSPHATE
     Indication: ACUTE MYELOID LEUKAEMIA
     Dosage: UNK
     Route: 042
     Dates: start: 20151215, end: 20151218
  3. CYTARABINE. [Suspect]
     Active Substance: CYTARABINE
     Dosage: UNK
     Route: 041
     Dates: start: 20150928, end: 20160120
  4. MITOXANTRONE [Suspect]
     Active Substance: MITOXANTRONE HYDROCHLORIDE
     Indication: ACUTE MYELOID LEUKAEMIA
     Dosage: 19 MILLIGRAM, QD
     Route: 041
     Dates: start: 20150928, end: 20151002
  5. AMSALYO [Suspect]
     Active Substance: AMSACRINE
     Indication: ACUTE MYELOID LEUKAEMIA
     Dosage: 100 MG/M2
     Route: 041
     Dates: start: 20151112, end: 20151115
  6. METHOTREXATE. [Suspect]
     Active Substance: METHOTREXATE
     Indication: ACUTE MYELOID LEUKAEMIA
     Dosage: 15 MILLIGRAM, TOTAL
     Route: 037
     Dates: start: 20150928, end: 20150928
  7. CYTARABINE. [Suspect]
     Active Substance: CYTARABINE
     Indication: ACUTE MYELOID LEUKAEMIA
     Dosage: 30 MILLIGRAM, TOTAL
     Route: 037
     Dates: start: 20150928, end: 20150928
  8. ETOPOPHOS [Suspect]
     Active Substance: ETOPOSIDE PHOSPHATE
     Dosage: 236 MILLIGRAM, QD
     Route: 042
     Dates: start: 20151217, end: 20151219

REACTIONS (1)
  - Acute lymphocytic leukaemia [Fatal]

NARRATIVE: CASE EVENT DATE: 20181221
